FAERS Safety Report 14902571 (Version 1)
Quarter: 2018Q2

REPORT INFORMATION
  Report Type: Spontaneous
  Country: US (occurrence: US)
  Receive Date: 20180516
  Receipt Date: 20180516
  Transmission Date: 20180711
  Serious: Yes (Hospitalization)
  Sender: FDA-Public Use
  Company Number: US-SA-2017SA082417

PATIENT
  Age: 43 Year
  Sex: Male
  Weight: 53 kg

DRUGS (16)
  1. DAPSONE. [Concomitant]
     Active Substance: DAPSONE
  2. MAG-OX [Concomitant]
     Active Substance: MAGNESIUM OXIDE
  3. K-PHOS NEUTRAL [Concomitant]
     Active Substance: POTASSIUM PHOSPHATE\SODIUM PHOSPHATE
  4. ZANTAC [Concomitant]
     Active Substance: RANITIDINE HYDROCHLORIDE
  5. TACROLIMUS. [Suspect]
     Active Substance: TACROLIMUS
     Indication: PROPHYLAXIS AGAINST TRANSPLANT REJECTION
     Route: 048
  6. COLACE [Concomitant]
     Active Substance: DOCUSATE SODIUM
  7. VALTREX [Concomitant]
     Active Substance: VALACYCLOVIR HYDROCHLORIDE
  8. TYLENOL [Concomitant]
     Active Substance: ACETAMINOPHEN
  9. DELTASONE [Concomitant]
     Active Substance: PREDNISONE
  10. LIPITOR [Concomitant]
     Active Substance: ATORVASTATIN CALCIUM
  11. LANTUS [Suspect]
     Active Substance: INSULIN GLARGINE
     Route: 051
  12. NORVASC [Concomitant]
     Active Substance: AMLODIPINE BESYLATE
  13. CELLCEPT [Concomitant]
     Active Substance: MYCOPHENOLATE MOFETIL\MYCOPHENOLATE MOFETIL HYDROCHLORIDE
  14. SODIUM BICARBONATE. [Concomitant]
     Active Substance: SODIUM BICARBONATE
  15. HUMALOG [Suspect]
     Active Substance: INSULIN LISPRO
     Route: 058
  16. DIFLUCAN [Concomitant]
     Active Substance: FLUCONAZOLE

REACTIONS (2)
  - Hypoglycaemia [Recovered/Resolved]
  - Hyperglycaemia [Recovered/Resolved]

NARRATIVE: CASE EVENT DATE: 20170319
